FAERS Safety Report 9687646 (Version 1)
Quarter: 2013Q4

REPORT INFORMATION
  Report Type: Spontaneous
  Country: DK (occurrence: DK)
  Receive Date: 20131114
  Receipt Date: 20131114
  Transmission Date: 20140711
  Serious: Yes (Hospitalization)
  Sender: FDA-Public Use
  Company Number: DK-AMGEN-DNKSP2013078802

PATIENT
  Age: 47 Year
  Sex: Male

DRUGS (1)
  1. NEUPOGEN [Suspect]
     Indication: BONE MARROW HARVEST
     Dosage: 10 MG/KG, STRENGTH: 0.3 MG/ML
     Route: 042
     Dates: start: 20130830, end: 20130903

REACTIONS (1)
  - Pyrexia [Recovered/Resolved]
